FAERS Safety Report 14573417 (Version 5)
Quarter: 2020Q3

REPORT INFORMATION
  Report Type: Report from Study
  Country: CA (occurrence: CA)
  Receive Date: 20180226
  Receipt Date: 20180622
  Transmission Date: 20201105
  Serious: Yes (Hospitalization)
  Sender: FDA-Public Use
  Company Number: CA-JNJFOC-20180232220

PATIENT
  Age: 78 Year
  Sex: Male

DRUGS (21)
  1. MUPIROCIN. [Concomitant]
     Active Substance: MUPIROCIN
     Indication: ERYTHEMA
     Route: 061
  2. VENLAFAXINE [Concomitant]
     Active Substance: VENLAFAXINE HYDROCHLORIDE
     Indication: MOOD ALTERED
  3. VALTREX [Concomitant]
     Active Substance: VALACYCLOVIR HYDROCHLORIDE
     Indication: PROPHYLAXIS
  4. IBRUTINIB [Suspect]
     Active Substance: IBRUTINIB
     Indication: CHRONIC LYMPHOCYTIC LEUKAEMIA
     Route: 048
     Dates: start: 20130924
  5. LAMOTRIGINE. [Concomitant]
     Active Substance: LAMOTRIGINE
     Indication: SEIZURE
  6. IBRUTINIB [Suspect]
     Active Substance: IBRUTINIB
     Indication: CHRONIC LYMPHOCYTIC LEUKAEMIA
     Route: 048
     Dates: start: 20131113
  7. BETAMETHASONE. [Concomitant]
     Active Substance: BETAMETHASONE
     Indication: DRY SKIN
  8. LAMOTRIGINE. [Concomitant]
     Active Substance: LAMOTRIGINE
     Indication: PROPHYLAXIS
  9. ADVIL [Concomitant]
     Active Substance: IBUPROFEN
     Indication: CONTUSION
  10. BISOPROLOL [Concomitant]
     Active Substance: BISOPROLOL
     Indication: PROPHYLAXIS
  11. BISOPROLOL [Concomitant]
     Active Substance: BISOPROLOL
     Indication: ATRIAL FIBRILLATION
  12. COVERSYL [Concomitant]
     Active Substance: PERINDOPRIL
     Indication: MITRAL VALVE DISEASE
  13. PANTOLOC [Concomitant]
     Active Substance: PANTOPRAZOLE SODIUM
     Indication: HICCUPS
  14. PANTOLOC [Concomitant]
     Active Substance: PANTOPRAZOLE SODIUM
     Indication: INTESTINAL CONGESTION
  15. VENLAFAXINE [Concomitant]
     Active Substance: VENLAFAXINE HYDROCHLORIDE
     Indication: PROPHYLAXIS
  16. CLARITIN [Concomitant]
     Active Substance: LORATADINE
     Indication: RASH
  17. FUROSEMIDE. [Concomitant]
     Active Substance: FUROSEMIDE
     Indication: CARDIAC FAILURE
  18. VALTREX [Concomitant]
     Active Substance: VALACYCLOVIR HYDROCHLORIDE
     Indication: HERPES ZOSTER
  19. PANTOLOC [Concomitant]
     Active Substance: PANTOPRAZOLE SODIUM
     Indication: GASTROOESOPHAGEAL REFLUX DISEASE
  20. CLARITIN [Concomitant]
     Active Substance: LORATADINE
     Indication: PROPHYLAXIS
  21. ADVIL [Concomitant]
     Active Substance: IBUPROFEN
     Indication: SWELLING

REACTIONS (2)
  - Cerebral haemorrhage [Recovered/Resolved with Sequelae]
  - Fall [Recovered/Resolved]

NARRATIVE: CASE EVENT DATE: 20180213
